FAERS Safety Report 5974233-7 (Version None)
Quarter: 2008Q4

REPORT INFORMATION
  Report Type: 
  Country: None (occurrence: None)
  Receive Date: 20081201
  Receipt Date: 20081127
  Transmission Date: 20090506
  Serious: Yes (Death)
  Sender: FDA-Public Use
  Company Number: PH-PFIZER INC-2008080412

PATIENT
  Sex: Male
  Weight: 45 kg

DRUGS (1)
  1. CEFOPERAZONE/SULBACTAM [Suspect]
     Indication: SEPSIS
     Dates: start: 20080628, end: 20080701

REACTIONS (1)
  - ACUTE RESPIRATORY FAILURE [None]
